FAERS Safety Report 16448825 (Version 1)
Quarter: 2019Q2

REPORT INFORMATION
  Report Type: Spontaneous
  Country: US (occurrence: US)
  Receive Date: 20190619
  Receipt Date: 20190619
  Transmission Date: 20190711
  Serious: No
  Sender: FDA-Public Use
  Company Number: US-ELI_LILLY_AND_COMPANY-US201905001351

PATIENT
  Sex: Female

DRUGS (1)
  1. FORTEO [Suspect]
     Active Substance: TERIPARATIDE
     Indication: OSTEOPOROSIS
     Dosage: UNK UNK, UNKNOWN
     Route: 065
     Dates: start: 201902, end: 201904

REACTIONS (6)
  - Fatigue [Unknown]
  - Insomnia [Unknown]
  - Headache [Unknown]
  - Arthralgia [Unknown]
  - Pain [Unknown]
  - Malaise [Unknown]
